FAERS Safety Report 4416737-4 (Version None)
Quarter: 2004Q3

REPORT INFORMATION
  Report Type: 
  Country: None (occurrence: None)
  Receive Date: 20040802
  Receipt Date: 20040723
  Transmission Date: 20050211
  Serious: Yes (Hospitalization)
  Sender: FDA-Public Use
  Company Number: K200401105

PATIENT
  Age: 84 Year
  Sex: Female

DRUGS (12)
  1. PROLOPRIM [Suspect]
     Indication: URINARY TRACT INFECTION
     Dosage: 200 MG, BID, ORAL
     Route: 048
     Dates: start: 20040513, end: 20040517
  2. LANOXIN [Suspect]
     Indication: ATRIAL FIBRILLATION
     Dosage: 250 MCG, QD, ORAL
     Route: 048
     Dates: end: 20040519
  3. DOXAZOSIN (DOXAZOSIN) [Concomitant]
  4. LANSOPRAZOLE [Concomitant]
  5. METFORMIN HCL [Concomitant]
  6. FUROSEMIDE [Concomitant]
  7. CO-CODAMOL (CODEINE PHOSPHATE, PARACETAMOL) [Concomitant]
  8. ESTRADIOL [Concomitant]
  9. ZESTORETIC (HYDROCHLOROTHIAZIDE, LISINOPRIL DIHYDRATE) [Concomitant]
  10. AMOXICILLIN TRIHYDRATE [Concomitant]
  11. DOMPERIDONE (DOMPERIDONE) [Concomitant]
  12. LISINOPRIL [Concomitant]

REACTIONS (5)
  - BLOOD CREATININE INCREASED [None]
  - DEHYDRATION [None]
  - FEELING ABNORMAL [None]
  - GENERAL PHYSICAL HEALTH DETERIORATION [None]
  - THERAPEUTIC AGENT TOXICITY [None]
